FAERS Safety Report 6014166-3 (Version None)
Quarter: 2008Q4

REPORT INFORMATION
  Report Type: 
  Country: None (occurrence: None)
  Receive Date: 20081219
  Receipt Date: 20080129
  Transmission Date: 20090506
  Serious: No
  Sender: FDA-Public Use
  Company Number: A0706063A

PATIENT
  Age: 70 Year
  Sex: Male

DRUGS (10)
  1. AVODART [Suspect]
     Indication: BENIGN PROSTATIC HYPERPLASIA
     Dosage: .5MG PER DAY
     Route: 048
     Dates: start: 20080101, end: 20080101
  2. UROXATRAL [Concomitant]
  3. ADVAIR DISKUS 250/50 [Concomitant]
  4. PROTONIX [Concomitant]
  5. FLUTICASONE PROPIONATE [Concomitant]
  6. KLONOPIN [Concomitant]
  7. BUPROPION HCL [Concomitant]
  8. ATROVENT [Concomitant]
  9. ALBUTEROL [Concomitant]
  10. CALCIUM + VITAMIN D [Concomitant]

REACTIONS (1)
  - URINE FLOW DECREASED [None]
